FAERS Safety Report 6201623-X (Version None)
Quarter: 2009Q2

REPORT INFORMATION
  Report Type: 
  Country: None (occurrence: None)
  Receive Date: 20090526
  Receipt Date: 20090518
  Transmission Date: 20091009
  Serious: Yes (Hospitalization)
  Sender: FDA-Public Use
  Company Number: BR-ASTRAZENECA-2009UW12378

PATIENT
  Age: 6 Year
  Sex: Male

DRUGS (1)
  1. SYMBICORT [Suspect]
     Indication: BRONCHITIS
     Route: 055
     Dates: start: 20090401, end: 20090501

REACTIONS (7)
  - BRONCHITIS [None]
  - BRONCHOSPASM [None]
  - EAR INFECTION [None]
  - PNEUMONIA [None]
  - PYREXIA [None]
  - RHINITIS [None]
  - SINUSITIS [None]
